FAERS Safety Report 16012519 (Version 1)
Quarter: 2019Q1

REPORT INFORMATION
  Report Type: Spontaneous
  Country: US (occurrence: US)
  Receive Date: 20190130
  Receipt Date: 20190130
  Transmission Date: 20190418
  Serious: No
  Sender: FDA-Public Use
  Company Number: None

PATIENT
  Age: 79 Year
  Sex: Male

DRUGS (3)
  1. STUENT [Suspect]
     Active Substance: UNSPECIFIED INGREDIENT
  2. TORISEL [Suspect]
     Active Substance: TEMSIROLIMUS
  3. INLYTA [Suspect]
     Active Substance: AXITINIB

REACTIONS (2)
  - Product complaint [None]
  - Vomiting [None]
